FAERS Safety Report 7846970-0 (Version None)
Quarter: 2011Q4

REPORT INFORMATION
  Report Type: 
  Country: None (occurrence: None)
  Receive Date: 20111025
  Receipt Date: 20111022
  Transmission Date: 20120403
  Serious: Yes (Hospitalization)
  Sender: FDA-Public Use
  Company Number: US-B.I. PHARMACEUTICALS,INC./RIDGEFIELD-2011-BP-24788BP

PATIENT
  Age: 80 Year
  Sex: Female

DRUGS (3)
  1. VANCOMYCIN HCL [Concomitant]
  2. PRADAXA [Suspect]
     Dosage: 300 MG
     Route: 048
  3. LOVENOX [Concomitant]

REACTIONS (1)
  - THROMBOCYTOPENIA [None]
